FAERS Safety Report 6383240-4 (Version None)
Quarter: 2009Q3

REPORT INFORMATION
  Report Type: 
  Country: None (occurrence: None)
  Receive Date: 20090929
  Receipt Date: 20090916
  Transmission Date: 20100115
  Serious: Yes (Hospitalization)
  Sender: FDA-Public Use
  Company Number: M0900258

PATIENT
  Sex: Female

DRUGS (1)
  1. KLOR-CON [Suspect]
     Indication: DRUG USE FOR UNKNOWN INDICATION
     Dosage: ORAL
     Route: 048

REACTIONS (2)
  - BLOOD POTASSIUM DECREASED [None]
  - WRONG TECHNIQUE IN DRUG USAGE PROCESS [None]
